FAERS Safety Report 10199584 (Version 2)
Quarter: 2014Q2

REPORT INFORMATION
  Report Type: Spontaneous
  Country: JP (occurrence: JP)
  Receive Date: 20140527
  Receipt Date: 20140605
  Transmission Date: 20141212
  Serious: Yes (Other)
  Sender: FDA-Public Use
  Company Number: JP-BAXTER-2014BAX025732

PATIENT
  Sex: Male

DRUGS (2)
  1. SUPRANE [Suspect]
     Indication: ORTHOPAEDIC PROCEDURE
     Route: 055
  2. SUPRANE [Suspect]
     Route: 055

REACTIONS (1)
  - Asthma [Recovered/Resolved]
